FAERS Safety Report 23592571 (Version 1)
Quarter: 2024Q1

REPORT INFORMATION
  Report Type: Spontaneous
  Country: US (occurrence: US)
  Receive Date: 20240304
  Receipt Date: 20240304
  Transmission Date: 20240410
  Serious: No
  Sender: FDA-Public Use
  Company Number: US-PERRIGO-23US006128

PATIENT
  Age: 57 Year
  Sex: Male
  Weight: 90.703 kg

DRUGS (1)
  1. NICOTINE POLACRILEX [Suspect]
     Active Substance: NICOTINE
     Indication: Smoking cessation therapy
     Dosage: 2 MG, QD
     Route: 002
     Dates: start: 20230101, end: 20230521

REACTIONS (3)
  - Tonsillitis [Recovered/Resolved]
  - Oropharyngeal pain [Recovering/Resolving]
  - Expired product administered [Recovered/Resolved]

NARRATIVE: CASE EVENT DATE: 20230101
